FAERS Safety Report 5143088-5 (Version None)
Quarter: 2006Q4

REPORT INFORMATION
  Report Type: 
  Country: None (occurrence: None)
  Receive Date: 20061103
  Receipt Date: 20061009
  Transmission Date: 20070319
  Serious: Yes (Other)
  Sender: FDA-Public Use
  Company Number: AUWYE155009OCT06

PATIENT
  Sex: Female
  Weight: 70 kg

DRUGS (3)
  1. ENBREL [Suspect]
     Indication: ANKYLOSING SPONDYLITIS
     Route: 058
     Dates: start: 20060703, end: 20061010
  2. ORAL CONTRACEPTIVE NOS [Concomitant]
  3. OROXINE [Concomitant]
     Indication: HYPOTHYROIDISM
     Dosage: UNKNOWN
     Route: 048
     Dates: start: 19990101

REACTIONS (8)
  - ANHEDONIA [None]
  - CLUMSINESS [None]
  - DEMYELINATION [None]
  - DEPRESSION [None]
  - FATIGUE [None]
  - HYPERSOMNIA [None]
  - LOSS OF LIBIDO [None]
  - MUSCULAR WEAKNESS [None]
